FAERS Safety Report 9463875 (Version 5)
Quarter: 2014Q1

REPORT INFORMATION
  Report Type: Spontaneous
  Country: NO (occurrence: NO)
  Receive Date: 20130819
  Receipt Date: 20140114
  Transmission Date: 20141002
  Serious: Yes (Life-Threatening, Hospitalization)
  Sender: FDA-Public Use
  Company Number: NO-JNJFOC-20130805061

PATIENT
  Age: 72 Year
  Sex: Male

DRUGS (54)
  1. FENTANYL [Suspect]
     Indication: SEDATION
     Route: 062
     Dates: start: 20130428, end: 20130430
  2. FENTANYL [Suspect]
     Indication: SEDATION
     Route: 062
     Dates: start: 20130426, end: 20130428
  3. ANEXATE [Suspect]
     Indication: REVERSAL OF SEDATION
     Route: 065
     Dates: start: 20130516, end: 20130516
  4. DEXDOR [Suspect]
     Indication: SEDATION
     Route: 065
     Dates: start: 20130428, end: 20130501
  5. CATAPRESSAN (CLONIDINE) [Suspect]
     Indication: SEDATION
     Route: 065
     Dates: start: 20130502, end: 20130509
  6. STESOLID [Suspect]
     Indication: CONVULSION
     Route: 065
     Dates: start: 20130429, end: 20130503
  7. PROPOFOL [Suspect]
     Indication: CONVULSION
     Route: 065
     Dates: start: 20130427, end: 20130428
  8. MIDAZOLAM [Suspect]
     Indication: CONVULSION
     Route: 065
     Dates: start: 20130427, end: 20130428
  9. MIDAZOLAM [Suspect]
     Indication: CONVULSION
     Route: 065
     Dates: start: 20130426, end: 20130427
  10. MIDAZOLAM [Suspect]
     Indication: CONVULSION
     Route: 065
     Dates: start: 20130428, end: 20130429
  11. MIDAZOLAM [Suspect]
     Indication: SEDATION
     Route: 065
     Dates: start: 20130428, end: 20130429
  12. MIDAZOLAM [Suspect]
     Indication: SEDATION
     Route: 065
     Dates: start: 20130427, end: 20130428
  13. MIDAZOLAM [Suspect]
     Indication: SEDATION
     Route: 065
     Dates: start: 20130426, end: 20130427
  14. PRO-EPANUTIN [Interacting]
     Indication: CONVULSION
     Dosage: 300 MG FNE X 2
     Route: 065
     Dates: start: 20130511, end: 20130511
  15. PRO-EPANUTIN [Interacting]
     Indication: CONVULSION
     Route: 065
     Dates: start: 20130430, end: 20130430
  16. PRO-EPANUTIN [Interacting]
     Indication: CONVULSION
     Dosage: 400 MG FNE X 2
     Route: 065
     Dates: start: 20130502, end: 20130510
  17. PRO-EPANUTIN [Interacting]
     Indication: CONVULSION
     Dosage: 300 MG FNE X 2
     Route: 065
     Dates: start: 20130501, end: 20130501
  18. PRO-EPANUTIN [Interacting]
     Indication: CONVULSION
     Route: 065
     Dates: start: 20130512, end: 20130512
  19. AMINOPHYLLINE [Interacting]
     Indication: ASTHMA
     Dosage: 50-25 MG/HR
     Route: 065
     Dates: start: 20130516, end: 20130520
  20. DIFLUCAN [Interacting]
     Indication: FUNGAL INFECTION
     Route: 065
     Dates: start: 20130507, end: 20130520
  21. DIFLUCAN [Interacting]
     Indication: FUNGAL INFECTION
     Dosage: 6-MAY: 800 MG X 1, 7-MAY-20-MAY: 400 MG X 1, 21-MAY-22-MAY: 200 MG X 1
     Route: 065
     Dates: start: 20130506, end: 20130506
  22. DIFLUCAN [Interacting]
     Indication: FUNGAL INFECTION
     Route: 065
     Dates: start: 20130521, end: 20130522
  23. FRAGMIN [Concomitant]
     Indication: THROMBOSIS PROPHYLAXIS
     Dosage: 2500-5000 IU * 1
     Route: 065
     Dates: start: 20130428, end: 20130522
  24. RELISTOR (METHYLNALTREXONE) [Concomitant]
     Indication: PRODUCT USED FOR UNKNOWN INDICATION
     Route: 065
     Dates: start: 20130427, end: 20130430
  25. KAJOS [Concomitant]
     Indication: MINERAL SUPPLEMENTATION
     Route: 048
     Dates: start: 20130501, end: 20130503
  26. KAJOS [Concomitant]
     Indication: MINERAL SUPPLEMENTATION
     Route: 048
     Dates: start: 20130504, end: 20130517
  27. NOREPINEPHRINE [Concomitant]
     Indication: VASOPRESSIVE THERAPY
     Dosage: TITRATED TO EFFECT, INITERMITTENT USE AS NEEDED
     Route: 065
  28. BURINEX [Concomitant]
     Indication: PRODUCT USED FOR UNKNOWN INDICATION
     Dosage: 0.5-1 MG (3-4 TIMES)
     Route: 065
     Dates: start: 20130505, end: 20130522
  29. BACTRIM [Concomitant]
     Indication: INFECTION
     Route: 065
     Dates: start: 20130519, end: 20130522
  30. CETIRIZINE [Concomitant]
     Indication: HYPERSENSITIVITY
     Route: 065
     Dates: start: 20130507, end: 20130522
  31. AFIPRAN [Concomitant]
     Indication: PRODUCT USED FOR UNKNOWN INDICATION
     Route: 065
     Dates: start: 20130427, end: 20130504
  32. LAXOBERAL [Concomitant]
     Indication: PRODUCT USED FOR UNKNOWN INDICATION
     Dosage: 10-15 GTT X 1-2
     Route: 065
     Dates: start: 20130427, end: 20130522
  33. SINGULAIR [Concomitant]
     Indication: ASTHMA
     Route: 065
     Dates: start: 20130513, end: 20130522
  34. SOMAC [Concomitant]
     Indication: PROPHYLAXIS AGAINST GASTROINTESTINAL ULCER
     Route: 065
     Dates: start: 20130426, end: 20130522
  35. DALACIN [Concomitant]
     Indication: INFECTION
     Route: 065
     Dates: start: 20130428, end: 20130428
  36. SPIRIX [Concomitant]
     Indication: DIURETIC THERAPY
     Route: 065
     Dates: start: 20130503, end: 20130522
  37. ACTRAPID PENFILL [Concomitant]
     Indication: BLOOD GLUCOSE ABNORMAL
     Dosage: 1 IU/ML
     Route: 065
     Dates: start: 20130426, end: 20130522
  38. VANCOMYCIN [Concomitant]
     Indication: INFECTION
     Route: 065
     Dates: start: 20130516, end: 20130522
  39. RIVOTRIL [Concomitant]
     Indication: PRODUCT USED FOR UNKNOWN INDICATION
     Route: 065
     Dates: start: 20130509, end: 20130516
  40. POTASSIUM CHLORIDE [Concomitant]
     Indication: MINERAL SUPPLEMENTATION
     Route: 048
     Dates: start: 20130517, end: 20130522
  41. KEPPRA [Concomitant]
     Indication: PRODUCT USED FOR UNKNOWN INDICATION
     Route: 065
     Dates: start: 20130508, end: 20130509
  42. KEPPRA [Concomitant]
     Indication: PRODUCT USED FOR UNKNOWN INDICATION
     Route: 065
     Dates: start: 20130510, end: 20130522
  43. NALOXONE [Concomitant]
     Indication: PRODUCT USED FOR UNKNOWN INDICATION
     Route: 065
     Dates: start: 20130516, end: 20130516
  44. ATROVENT [Concomitant]
     Indication: ASTHMA
     Route: 065
     Dates: start: 20130426, end: 20130522
  45. SULFAMETHOXAZOLE + TRIMETHOPRIM [Concomitant]
     Indication: INFECTION
     Route: 048
     Dates: start: 20130517, end: 20130518
  46. CEFUROXIM [Concomitant]
     Indication: INFECTION
     Route: 065
     Dates: start: 20130426, end: 20130501
  47. MERONEM [Concomitant]
     Indication: INFECTION
     Route: 065
     Dates: start: 20130505, end: 20130512
  48. DIAMOX [Concomitant]
     Indication: METABOLIC ALKALOSIS
     Route: 065
     Dates: start: 20130427, end: 20130430
  49. VENTOLIN [Concomitant]
     Indication: ASTHMA
     Route: 065
     Dates: start: 20130426, end: 20130522
  50. SOLU-CORTEF [Concomitant]
     Indication: ASTHMA
     Route: 065
     Dates: start: 20130509, end: 20130521
  51. SOLU-CORTEF [Concomitant]
     Indication: ASTHMA
     Route: 065
     Dates: start: 20130426, end: 20130508
  52. KLEXANE [Concomitant]
     Indication: THROMBOSIS PROPHYLAXIS
     Route: 065
     Dates: start: 20130426, end: 20130427
  53. ESIDREX [Concomitant]
     Indication: PRODUCT USED FOR UNKNOWN INDICATION
     Route: 065
     Dates: start: 20130430, end: 20130507
  54. SINGULAIR [Concomitant]
     Route: 065
     Dates: start: 20130513, end: 20130522

REACTIONS (5)
  - Coma [Recovered/Resolved]
  - Drug interaction [Recovered/Resolved]
  - Drug effect prolonged [Recovered/Resolved]
  - Off label use [Unknown]
  - Brain injury [Unknown]
